FAERS Safety Report 23402672 (Version 1)
Quarter: 2024Q1

REPORT INFORMATION
  Report Type: Spontaneous
  Country: US (occurrence: US)
  Receive Date: 20240115
  Receipt Date: 20240115
  Transmission Date: 20240410
  Serious: No
  Sender: FDA-Public Use
  Company Number: US-ABBVIE-5582697

PATIENT
  Sex: Female
  Weight: 63 kg

DRUGS (1)
  1. LILETTA [Suspect]
     Active Substance: LEVONORGESTREL
     Indication: Prophylaxis
     Dosage: TIME INTERVAL: AS NECESSARY: FORM STRENGTH 52MG
     Route: 015
     Dates: start: 20231229

REACTIONS (4)
  - Menstrual discomfort [Recovered/Resolved]
  - Dysmenorrhoea [Recovered/Resolved]
  - Product contamination [Not Recovered/Not Resolved]
  - Nervousness [Recovered/Resolved]

NARRATIVE: CASE EVENT DATE: 20230101
